FAERS Safety Report 18256438 (Version 1)
Quarter: 2020Q3

REPORT INFORMATION
  Report Type: Spontaneous
  Country: US (occurrence: US)
  Receive Date: 20200911
  Receipt Date: 20200911
  Transmission Date: 20201103
  Serious: Yes (Hospitalization)
  Sender: FDA-Public Use
  Company Number: US-IPSEN BIOPHARMACEUTICALS, INC.-2020-15362

PATIENT
  Age: 39 Year
  Sex: Female

DRUGS (7)
  1. BOTULINUM TOXIN TYPE A [Suspect]
     Active Substance: BOTULINUM TOXIN TYPE A
     Indication: OFF LABEL USE
  2. BOTULINUM TOXIN TYPE A [Suspect]
     Active Substance: BOTULINUM TOXIN TYPE A
     Indication: PELVIC PAIN
     Dosage: 100 IU
     Route: 030
  3. GABAPENTIN. [Concomitant]
     Active Substance: GABAPENTIN
     Indication: PELVIC PAIN
     Route: 065
  4. KENALOG [Concomitant]
     Active Substance: TRIAMCINOLONE ACETONIDE
     Indication: PELVIC PAIN
     Route: 030
  5. BACLOFEN. [Concomitant]
     Active Substance: BACLOFEN
     Indication: PELVIC PAIN
     Route: 067
  6. MARCAINE [Concomitant]
     Active Substance: BUPIVACAINE HYDROCHLORIDE
     Indication: PELVIC PAIN
     Route: 030
  7. DULOXETINE. [Concomitant]
     Active Substance: DULOXETINE
     Indication: PELVIC PAIN
     Route: 065

REACTIONS (2)
  - Rectal abscess [Recovered/Resolved]
  - Off label use [Unknown]
